FAERS Safety Report 4565340-4 (Version None)
Quarter: 2005Q1

REPORT INFORMATION
  Report Type: 
  Country: None (occurrence: None)
  Receive Date: 20050126
  Receipt Date: 20050106
  Transmission Date: 20050727
  Serious: Yes (Other)
  Sender: FDA-Public Use
  Company Number: GBS050116343

PATIENT
  Age: 30 Year
  Sex: Female

DRUGS (3)
  1. PROZAC [Suspect]
  2. VALIUM [Concomitant]
  3. MOGADON            (NITRAZEPAM) [Concomitant]

REACTIONS (2)
  - AGGRESSION [None]
  - LEGAL PROBLEM [None]
